FAERS Safety Report 8469127-1 (Version None)
Quarter: 2012Q2

REPORT INFORMATION
  Report Type: 
  Country: None (occurrence: None)
  Receive Date: 20120621
  Receipt Date: 20120621
  Transmission Date: 20120825
  Serious: No
  Sender: FDA-Public Use
  Company Number: None

PATIENT
  Age: 76 Year
  Sex: Male
  Weight: 61.7 kg

DRUGS (1)
  1. HEPARIN [Suspect]
     Dosage: IV
     Route: 042
     Dates: start: 20111101, end: 20111105

REACTIONS (3)
  - WOUND HAEMORRHAGE [None]
  - HEPARIN-INDUCED THROMBOCYTOPENIA [None]
  - CATHETER SITE HAEMORRHAGE [None]
